FAERS Safety Report 16085486 (Version 3)
Quarter: 2019Q3

REPORT INFORMATION
  Report Type: Spontaneous
  Country: JP (occurrence: JP)
  Receive Date: 20190318
  Receipt Date: 20190830
  Transmission Date: 20191004
  Serious: Yes (Other)
  Sender: FDA-Public Use
  Company Number: JP-PFIZER INC-2018463401

PATIENT
  Age: 8 Year
  Sex: Male

DRUGS (3)
  1. BESPONSA [Suspect]
     Active Substance: INOTUZUMAB OZOGAMICIN
     Dosage: 0.5 MG/M2, DAILY
     Route: 041
     Dates: start: 20181113, end: 20181113
  2. BESPONSA [Suspect]
     Active Substance: INOTUZUMAB OZOGAMICIN
     Dosage: 0.5 MG/M2, DAILY
     Route: 041
     Dates: start: 20181120, end: 20181120
  3. BESPONSA [Suspect]
     Active Substance: INOTUZUMAB OZOGAMICIN
     Indication: ACUTE LYMPHOCYTIC LEUKAEMIA
     Dosage: 0.8 MG/M2, DAILY
     Route: 041
     Dates: start: 20181106, end: 20181106

REACTIONS (7)
  - Graft versus host disease [Unknown]
  - Rash [Recovering/Resolving]
  - Full blood count decreased [Recovering/Resolving]
  - Product use issue [Unknown]
  - Diarrhoea [Recovering/Resolving]
  - Neoplasm progression [Not Recovered/Not Resolved]
  - Transaminases increased [Recovering/Resolving]

NARRATIVE: CASE EVENT DATE: 20181106
